FAERS Safety Report 8166962-4 (Version None)
Quarter: 2012Q1

REPORT INFORMATION
  Report Type: 
  Country: None (occurrence: None)
  Receive Date: 20120227
  Receipt Date: 20120217
  Transmission Date: 20120608
  Serious: Yes (Other)
  Sender: FDA-Public Use
  Company Number: JP-ASTELLAS-2012JP001464

PATIENT
  Age: 94 Year
  Sex: Female

DRUGS (1)
  1. VESICARE [Suspect]
     Dosage: 2.5 MG, UNKNOWN/D
     Route: 048

REACTIONS (1)
  - FRACTURE [None]
